FAERS Safety Report 23275318 (Version 1)
Quarter: 2023Q4

REPORT INFORMATION
  Report Type: Spontaneous
  Country: US (occurrence: US)
  Receive Date: 20231208
  Receipt Date: 20231208
  Transmission Date: 20240110
  Serious: Yes (Hospitalization, Other)
  Sender: FDA-Public Use
  Company Number: US-KOANAAP-SML-US-2023-01611

PATIENT

DRUGS (3)
  1. CAPECITABINE [Suspect]
     Active Substance: CAPECITABINE
     Indication: Cholangiocarcinoma
     Dosage: 21 DAY CYCLE ALONG WITH YTTRIUM-90 TRANSARTERIAL RADIOEMBOLIZATION (TARE)
     Route: 048
  2. GEMCITABINE [Suspect]
     Active Substance: GEMCITABINE
     Indication: Cholangiocarcinoma
     Dosage: DAYS 1 AND 8 OVER A 21 DAY CYCLE FOR 3 CYCLES
     Route: 042
  3. CISPLATIN [Suspect]
     Active Substance: CISPLATIN
     Indication: Cholangiocarcinoma
     Dosage: DAYS 1 AND 8 OVER A 21 DAY CYCLE FOR 3 CYCLES
     Route: 042

REACTIONS (5)
  - Thrombocytopenia [Unknown]
  - Hypoalbuminaemia [Unknown]
  - Ascites [Unknown]
  - Pruritus [Unknown]
  - Cerebrovascular accident [Unknown]
